FAERS Safety Report 11446872 (Version 1)
Quarter: 2015Q3

REPORT INFORMATION
  Report Type: Spontaneous
  Country: US (occurrence: US)
  Receive Date: 20150831
  Receipt Date: 20150831
  Transmission Date: 20151125
  Serious: No
  Sender: FDA-Public Use
  Company Number: US-ELI_LILLY_AND_COMPANY-US200812005428

PATIENT
  Sex: Female

DRUGS (6)
  1. LISIPRIL [Concomitant]
     Indication: BLOOD PRESSURE MEASUREMENT
  2. LYRICA [Concomitant]
     Active Substance: PREGABALIN
  3. IMMUNOGLOBULIN [Concomitant]
     Active Substance: HUMAN IMMUNOGLOBULIN G
     Route: 042
  4. FENTANYL. [Concomitant]
     Active Substance: FENTANYL
     Dosage: UNK, QOD
     Route: 061
  5. GLUCOPHAGE [Concomitant]
     Active Substance: METFORMIN HYDROCHLORIDE
  6. CYMBALTA [Suspect]
     Active Substance: DULOXETINE HYDROCHLORIDE
     Indication: NEUROPATHY PERIPHERAL
     Dosage: 120 MG, DAILY (1/D)
     Dates: start: 2004

REACTIONS (5)
  - Asthenopia [Not Recovered/Not Resolved]
  - Drug ineffective [Not Recovered/Not Resolved]
  - Intraocular pressure increased [Recovered/Resolved]
  - Vision blurred [Not Recovered/Not Resolved]
  - Eye pain [Not Recovered/Not Resolved]

NARRATIVE: CASE EVENT DATE: 2007
